FAERS Safety Report 22077850 (Version 4)
Quarter: 2023Q1

REPORT INFORMATION
  Report Type: Spontaneous
  Country: US (occurrence: US)
  Receive Date: 20230309
  Receipt Date: 20230323
  Transmission Date: 20230417
  Serious: No
  Sender: FDA-Public Use
  Company Number: US-UNITED THERAPEUTICS-UNT-2023-004005

PATIENT
  Age: 58 Year
  Sex: Female
  Weight: 64.399 kg

DRUGS (14)
  1. REMODULIN [Suspect]
     Active Substance: TREPROSTINIL
     Indication: Pulmonary arterial hypertension
     Dosage: 0.008 ?G/KG, CONTINUING
     Route: 041
     Dates: start: 202302
  2. REMODULIN [Suspect]
     Active Substance: TREPROSTINIL
     Dosage: 0.0104 ?G/KG, CONTINUING
     Route: 041
     Dates: end: 202302
  3. REMODULIN [Suspect]
     Active Substance: TREPROSTINIL
     Indication: Pulmonary arterial hypertension
     Dosage: 0.0104 ?G/KG (PHARMACY PRE-FILLED WITH 2.2 ML PER CASSETTE; AT A PUMP RATE OF 16 MCL PER HOUR), CONT
     Route: 058
     Dates: start: 202302
  4. REMODULIN [Suspect]
     Active Substance: TREPROSTINIL
     Dosage: 0.012 ?G/KG, CONTINUING (PHARMACY PRE-FILLED WITH 2.6 ML PER CASSETTE, RATE OF 18 MCL PER HOUR)
     Route: 058
     Dates: start: 202302
  5. REMODULIN [Suspect]
     Active Substance: TREPROSTINIL
     Dosage: 0.018 ?G/KG, CONTINUING (PHARMACY PRE-FILLED WITH 3 ML PER CASSETTE WITH RATE OF 28 MCL PER HOUR)
     Route: 058
     Dates: start: 202302
  6. REMODULIN [Suspect]
     Active Substance: TREPROSTINIL
     Indication: Pulmonary arterial hypertension
     Dosage: 0.022 ?G/KG, CONTINUING (PRE-FILLED WITH 3 ML PER CASSETTE AT THE RATE OF 28 MCL PER HOUR)
     Route: 058
  7. REMODULIN [Suspect]
     Active Substance: TREPROSTINIL
     Dosage: UNK, CONTINUING (PHARMACY FILLED WITH 2.2 ML PER CASSETTE AT THE PUMP RATE OF 17 MCL PER HOUR)
     Route: 058
  8. REMODULIN [Suspect]
     Active Substance: TREPROSTINIL
     Dosage: 0.024 ?G/KG, CONTINUING (PHARMACY PRE-FILLED WITH 2.4 ML PER CASSETTE WITH PUMP RATE OF 18 MCL PER H
     Route: 058
  9. REMODULIN [Suspect]
     Active Substance: TREPROSTINIL
     Dosage: UNK, CONTINUING
     Route: 058
  10. VICODIN [Suspect]
     Active Substance: ACETAMINOPHEN\HYDROCODONE BITARTRATE
     Indication: Infusion site pain
     Route: 065
  11. LECITHIN\POLOXAMER 407 [Suspect]
     Active Substance: LECITHIN\POLOXAMER 407
     Indication: Infusion site pain
     Route: 065
  12. PREPARATION H NOS [Suspect]
     Active Substance: COCOA BUTTER\PETROLATUM\PHENYLEPHRINE HYDROCHLORIDE\PHENYLEPHRINE HYDROCHLORIDE OR MINERAL OIL
     Indication: Infusion site pain
     Route: 065
  13. ADEMPAS [Concomitant]
     Active Substance: RIOCIGUAT
     Indication: Product used for unknown indication
     Dosage: UNK
     Route: 065
  14. OPSUMIT [Concomitant]
     Active Substance: MACITENTAN
     Indication: Product used for unknown indication
     Route: 065

REACTIONS (24)
  - Epistaxis [Unknown]
  - Chest pain [Recovering/Resolving]
  - Back pain [Recovering/Resolving]
  - Infusion site pain [Not Recovered/Not Resolved]
  - Infusion site erythema [Unknown]
  - Infusion site swelling [Unknown]
  - Cough [Unknown]
  - Dyspnoea exertional [Unknown]
  - Contusion [Recovering/Resolving]
  - Fluid retention [Unknown]
  - Weight decreased [Unknown]
  - Nausea [Unknown]
  - Diarrhoea [Unknown]
  - Vertigo [Unknown]
  - Blood pressure decreased [Unknown]
  - Haemoglobin decreased [Unknown]
  - Device infusion issue [Unknown]
  - Dizziness [Unknown]
  - Device defective [Unknown]
  - Device leakage [Unknown]
  - Device leakage [Unknown]
  - Device leakage [Unknown]
  - Vomiting [Unknown]
  - Therapy non-responder [Unknown]

NARRATIVE: CASE EVENT DATE: 20230201
